FAERS Safety Report 6710433-6 (Version None)
Quarter: 2010Q2

REPORT INFORMATION
  Report Type: 
  Country: None (occurrence: None)
  Receive Date: 20100504
  Receipt Date: 20100421
  Transmission Date: 20101027
  Serious: Yes (Other)
  Sender: FDA-Public Use
  Company Number: PHHY2010JP21582

PATIENT
  Sex: Male
  Weight: 52 kg

DRUGS (1)
  1. ZOMETA [Suspect]
     Indication: CARCINOMA IN SITU OF SKIN
     Dosage: 4 MG, MONTHLY
     Route: 042
     Dates: start: 20090618

REACTIONS (4)
  - OPEN WOUND [None]
  - ORAL SURGERY [None]
  - OSTEOMYELITIS [None]
  - STOMATITIS [None]
